FAERS Safety Report 8506651-7 (Version None)
Quarter: 2012Q2

REPORT INFORMATION
  Report Type: 
  Country: None (occurrence: None)
  Receive Date: 20120405
  Receipt Date: 20090218
  Transmission Date: 20120825
  Serious: Yes (Other)
  Sender: FDA-Public Use
  Company Number: PHEH2009US01514

PATIENT
  Age: 70 Year
  Sex: Female
  Weight: 52.6 kg

DRUGS (3)
  1. RECLAST [Suspect]
     Indication: OSTEOPOROSIS POSTMENOPAUSAL
     Dosage: 5 MG ONCE YEARLY, INTRAVENOUS
     Route: 042
     Dates: start: 20081210, end: 20081210
  2. DILANTIN [Concomitant]
  3. NALFON [Concomitant]

REACTIONS (4)
  - EYELID OEDEMA [None]
  - EYE PAIN [None]
  - CONJUNCTIVAL HYPERAEMIA [None]
  - IRITIS [None]
